FAERS Safety Report 4579196-7 (Version None)
Quarter: 2005Q1

REPORT INFORMATION
  Report Type: 
  Country: None (occurrence: None)
  Receive Date: 20050208
  Receipt Date: 20050208
  Transmission Date: 20050727
  Serious: Yes (Other)
  Sender: FDA-Public Use
  Company Number: None

PATIENT
  Age: 47 Year
  Sex: Female
  Weight: 52.1637 kg

DRUGS (1)
  1. ZOCOR [Suspect]
     Indication: PAIN
     Dosage: 20 MG 1 AT BED TIME ORAL
     Route: 048
     Dates: start: 20040623, end: 20040705

REACTIONS (1)
  - MYALGIA [None]
